FAERS Safety Report 13769424 (Version 2)
Quarter: 2017Q3

REPORT INFORMATION
  Report Type: Report from Study
  Country: US (occurrence: BR)
  Receive Date: 20170719
  Receipt Date: 20170829
  Transmission Date: 20171127
  Serious: Yes (Death)
  Sender: FDA-Public Use
  Company Number: US-SUNOVION-2017SUN003098

PATIENT
  Age: 79 Year
  Sex: Male

DRUGS (1)
  1. GLYCOPYRROLATE. [Suspect]
     Active Substance: GLYCOPYRROLATE
     Indication: LUNG DISORDER
     Dosage: .05 MG, UNK
     Route: 065

REACTIONS (10)
  - Dementia Alzheimer^s type [Fatal]
  - Multiple organ dysfunction syndrome [Fatal]
  - Dysphagia [Fatal]
  - Depression [Fatal]
  - Movement disorder [Fatal]
  - Lung disorder [Fatal]
  - Head injury [Fatal]
  - Product use in unapproved indication [Unknown]
  - Respiratory failure [Fatal]
  - Fall [Fatal]
